FAERS Safety Report 6571205-9 (Version None)
Quarter: 2010Q1

REPORT INFORMATION
  Report Type: 
  Country: None (occurrence: None)
  Receive Date: 20100129
  Receipt Date: 20100113
  Transmission Date: 20100710
  Serious: Yes (Hospitalization)
  Sender: FDA-Public Use
  Company Number: 2009AC000345

PATIENT
  Age: 70 Year
  Sex: Male
  Weight: 117.9352 kg

DRUGS (41)
  1. DIGOXIN [Suspect]
     Dosage: 0.25 MG;QD;PO
     Route: 048
  2. COZAAR [Concomitant]
  3. METOPROLOL TARTRATE [Concomitant]
  4. VICODIN [Concomitant]
  5. XALATAN [Concomitant]
  6. TIMOLOL MALEATE [Concomitant]
  7. PRAVACHOL [Concomitant]
  8. POTASSIUM [Concomitant]
  9. LASIX [Concomitant]
  10. COUMADIN [Concomitant]
  11. GLYBURIDE [Concomitant]
  12. TAMBOCOR [Concomitant]
  13. MAXZIDE [Concomitant]
  14. DARVOCET [Concomitant]
  15. PROSCAR [Concomitant]
  16. HYDROCODONE BITARTRATE [Concomitant]
  17. PLAVIX [Concomitant]
  18. NITROSTAT [Concomitant]
  19. FLECAINIDE ACETATE [Concomitant]
  20. ZOLOFT [Concomitant]
  21. TRENTAL [Concomitant]
  22. TRICOR [Concomitant]
  23. LEXIPRO [Concomitant]
  24. FOLTX [Concomitant]
  25. PREVACID [Concomitant]
  26. XANAX [Concomitant]
  27. MATANX [Concomitant]
  28. CHELATION [Concomitant]
  29. IBUPROFEN [Concomitant]
  30. TYLENOL-500 [Concomitant]
  31. ASPIRIN [Concomitant]
  32. POTASSIUM [Concomitant]
  33. COUMADIN [Concomitant]
  34. MULTI-VITAMIN [Concomitant]
  35. WARFARIN SODIUM [Concomitant]
  36. HYDROCHLOROTHIAZIDE [Concomitant]
  37. PENTOXIFYLLI [Concomitant]
  38. XALATAN [Concomitant]
  39. HYDROCODONE BITARTRATE AND ACETAMINOPHEN [Concomitant]
  40. TRICOR [Concomitant]
  41. DIGOXIN [Suspect]
     Dosage: 0.125 MG QD:PO
     Route: 048

REACTIONS (41)
  - ANGINA PECTORIS [None]
  - ANGIOPATHY [None]
  - ANHEDONIA [None]
  - ANXIETY [None]
  - AORTIC ANEURYSM [None]
  - ARTERIOSCLEROSIS [None]
  - ARTHRALGIA [None]
  - ATRIAL FIBRILLATION [None]
  - BLOOD GLUCOSE INCREASED [None]
  - BLOOD UREA INCREASED [None]
  - BRAIN NATRIURETIC PEPTIDE INCREASED [None]
  - CARDIAC FAILURE CONGESTIVE [None]
  - CARDIOMEGALY [None]
  - CONDITION AGGRAVATED [None]
  - DEATH OF RELATIVE [None]
  - DEPRESSION [None]
  - DIABETES MELLITUS [None]
  - DIABETIC NEUROPATHY [None]
  - DIASTOLIC DYSFUNCTION [None]
  - DYSPNOEA [None]
  - ECONOMIC PROBLEM [None]
  - GAIT DISTURBANCE [None]
  - GASTROOESOPHAGEAL REFLUX DISEASE [None]
  - HAEMORRHAGIC ANAEMIA [None]
  - HEART RATE INCREASED [None]
  - INTERNATIONAL NORMALISED RATIO INCREASED [None]
  - JOINT SWELLING [None]
  - MALAISE [None]
  - MULTIPLE INJURIES [None]
  - MUSCLE HAEMORRHAGE [None]
  - OEDEMA PERIPHERAL [None]
  - OVERDOSE [None]
  - PAIN [None]
  - PAIN IN EXTREMITY [None]
  - PRODUCT QUALITY ISSUE [None]
  - PROTHROMBIN TIME PROLONGED [None]
  - QUALITY OF LIFE DECREASED [None]
  - RENAL DISORDER [None]
  - SPLENOMEGALY [None]
  - THERAPEUTIC AGENT TOXICITY [None]
  - THROMBOCYTOPENIA [None]
